FAERS Safety Report 8501978-7 (Version None)
Quarter: 2012Q3

REPORT INFORMATION
  Report Type: 
  Country: None (occurrence: None)
  Receive Date: 20120711
  Receipt Date: 20120618
  Transmission Date: 20120928
  Serious: No
  Sender: FDA-Public Use
  Company Number: ZA-JNJFOC-20120610224

PATIENT
  Sex: Female

DRUGS (6)
  1. UNSPECIFIED MEDICATION FOR HYPOTHYROIDISM [Concomitant]
     Indication: HYPOTHYROIDISM
     Route: 048
  2. UNSPECIFIED BLOOD PRESSURE MEDS [Concomitant]
     Indication: HYPERTENSION
     Route: 048
  3. REVELLEX [Suspect]
     Route: 042
     Dates: start: 20120528
  4. PREDNISONE [Concomitant]
     Indication: CROHN'S DISEASE
     Route: 048
  5. REVELLEX [Suspect]
     Indication: CROHN'S DISEASE
     Route: 042
     Dates: start: 20120514
  6. BUDESONIDE [Concomitant]
     Indication: CROHN'S DISEASE
     Route: 065

REACTIONS (3)
  - URINARY TRACT INFECTION [None]
  - POLLAKIURIA [None]
  - INFUSION RELATED REACTION [None]
